FAERS Safety Report 7240732-3 (Version None)
Quarter: 2011Q1

REPORT INFORMATION
  Report Type: 
  Country: None (occurrence: None)
  Receive Date: 20110124
  Receipt Date: 20100201
  Transmission Date: 20110831
  Serious: No
  Sender: FDA-Public Use
  Company Number: US-KINGPHARMUSA00001-K201000118

PATIENT
  Age: 42 Year
  Sex: Female
  Weight: 54.422 kg

DRUGS (1)
  1. EPIPEN JR. [Suspect]
     Dosage: 0.15 MG, SINGLE
     Dates: start: 20100130, end: 20100130

REACTIONS (5)
  - INJECTION SITE HAEMATOMA [None]
  - WOUND [None]
  - EXPIRED DRUG ADMINISTERED [None]
  - ACCIDENTAL EXPOSURE [None]
  - INJECTION SITE PAIN [None]
